FAERS Safety Report 8502362-2 (Version None)
Quarter: 2012Q3

REPORT INFORMATION
  Report Type: 
  Country: None (occurrence: None)
  Receive Date: 20120711
  Receipt Date: 20120704
  Transmission Date: 20120928
  Serious: Yes (Hospitalization)
  Sender: FDA-Public Use
  Company Number: JP-BAYER-2012-067769

PATIENT
  Age: 26 Year
  Sex: Female

DRUGS (2)
  1. YAZ [Suspect]
     Dosage: DAILY DOSE 1 DF
     Route: 048
     Dates: start: 20120416
  2. YAZ [Suspect]
     Indication: DYSMENORRHOEA
     Dosage: DAILY DOSE 1 DF
     Route: 048
     Dates: start: 20101130, end: 20110801

REACTIONS (2)
  - METRORRHAGIA [None]
  - ENDOMETRIAL CANCER [None]
